FAERS Safety Report 5199921-4 (Version None)
Quarter: 2007Q1

REPORT INFORMATION
  Report Type: 
  Country: None (occurrence: None)
  Receive Date: 20070103
  Receipt Date: 20061214
  Transmission Date: 20070707
  Serious: Yes (Other)
  Sender: FDA-Public Use
  Company Number: 233949

PATIENT
  Sex: 0

DRUGS (2)
  1. AVASTIN [Suspect]
     Indication: GLIOBLASTOMA MULTIFORME
  2. OXALIPLATIN [Suspect]
     Indication: GLIOBLASTOMA MULTIFORME

REACTIONS (3)
  - BLINDNESS [None]
  - METASTASES TO CENTRAL NERVOUS SYSTEM [None]
  - VISUAL ACUITY REDUCED [None]
